FAERS Safety Report 23277134 (Version 1)
Quarter: 2023Q4

REPORT INFORMATION
  Report Type: Spontaneous
  Country: US (occurrence: None)
  Receive Date: 20231207
  Receipt Date: 20231207
  Transmission Date: 20240109
  Serious: Yes (Other)
  Sender: FDA-Public Use
  Company Number: None

PATIENT
  Age: 60 Year
  Sex: Female
  Weight: 62.1 kg

DRUGS (2)
  1. MONTELUKAST SODIUM [Suspect]
     Active Substance: MONTELUKAST SODIUM
     Indication: Respiratory tract infection viral
     Dosage: OTHER QUANTITY : 1 TABLET(S);?FREQUENCY : AT BEDTIME;?
     Route: 048
  2. Vaginal estradiol [Concomitant]

REACTIONS (11)
  - Chest discomfort [None]
  - Headache [None]
  - Insomnia [None]
  - Agitation [None]
  - Disorientation [None]
  - Tachyphrenia [None]
  - Confusional state [None]
  - Nausea [None]
  - Panic attack [None]
  - Suicidal ideation [None]
  - Aphasia [None]

NARRATIVE: CASE EVENT DATE: 20231121
